FAERS Safety Report 11992925 (Version 1)
Quarter: 2016Q1

REPORT INFORMATION
  Report Type: Spontaneous
  Country: US (occurrence: None)
  Receive Date: 20160202
  Receipt Date: 20160202
  Transmission Date: 20160526
  Serious: Yes (Life-Threatening, Hospitalization, Disabling, Other)
  Sender: FDA-Public Use
  Company Number: None

PATIENT
  Age: 53 Year
  Sex: Female
  Weight: 161.03 kg

DRUGS (10)
  1. CITALOPRAM [Concomitant]
     Active Substance: CITALOPRAM HYDROBROMIDE
  2. ALPRAZOLAM. [Concomitant]
     Active Substance: ALPRAZOLAM
  3. SEROQUEL [Suspect]
     Active Substance: QUETIAPINE FUMARATE
     Indication: BIPOLAR DISORDER
     Dosage: 1/4 TABLET
     Route: 048
     Dates: start: 20150430, end: 20160121
  4. ADDERALL [Concomitant]
     Active Substance: AMPHETAMINE ASPARTATE\AMPHETAMINE SULFATE\DEXTROAMPHETAMINE SACCHARATE\DEXTROAMPHETAMINE SULFATE
  5. SYNTHROID [Concomitant]
     Active Substance: LEVOTHYROXINE SODIUM
  6. LISINOPRIL. [Concomitant]
     Active Substance: LISINOPRIL
  7. METFORMIN [Concomitant]
     Active Substance: METFORMIN HYDROCHLORIDE
  8. LASIX [Concomitant]
     Active Substance: FUROSEMIDE
  9. VITAMIN D3 [Concomitant]
     Active Substance: CHOLECALCIFEROL
  10. ALEVE [Concomitant]
     Active Substance: NAPROXEN SODIUM

REACTIONS (16)
  - Feeling hot [None]
  - Low density lipoprotein increased [None]
  - Adverse drug reaction [None]
  - Suicidal ideation [None]
  - Food craving [None]
  - Insomnia [None]
  - Pain threshold decreased [None]
  - Weight increased [None]
  - Anger [None]
  - Anxiety [None]
  - Dyskinesia [None]
  - Aggression [None]
  - Blood triglycerides increased [None]
  - Seborrhoea [None]
  - Abdominal discomfort [None]
  - Glycosylated haemoglobin increased [None]

NARRATIVE: CASE EVENT DATE: 20160121
